FAERS Safety Report 15591065 (Version 1)
Quarter: 2018Q4

REPORT INFORMATION
  Report Type: Spontaneous
  Country: CN (occurrence: CN)
  Receive Date: 20181106
  Receipt Date: 20181106
  Transmission Date: 20190205
  Serious: Yes (Other)
  Sender: FDA-Public Use
  Company Number: CN-PFIZER INC-2018446082

PATIENT
  Age: 51 Year
  Sex: Female
  Weight: 52 kg

DRUGS (4)
  1. PHARMORUBICIN [Suspect]
     Active Substance: EPIRUBICIN
     Indication: NEOPLASM MALIGNANT
     Dosage: 60 MG, EVERY 3 WEEKS (Q3W, D1)
     Route: 041
     Dates: start: 20180630, end: 20180630
  2. SODIUM CHLORIDE. [Concomitant]
     Active Substance: SODIUM CHLORIDE
     Indication: VEHICLE SOLUTION USE
     Dosage: 50 ML, EVERY 3 WEEKS (Q3W, D1)
     Route: 041
     Dates: start: 20180630, end: 20180630
  3. CYCLOPHOSPHAMIDE. [Suspect]
     Active Substance: CYCLOPHOSPHAMIDE
     Indication: NEOPLASM MALIGNANT
     Dosage: 850 MG, EVERY 3 WEEKS (Q3W, D1)
     Route: 041
     Dates: start: 20180630, end: 20180630
  4. STERILIZED WATER [Concomitant]
     Indication: VEHICLE SOLUTION USE
     Dosage: 50 ML,  EVERY 3 WEEKS (Q3W, D1)
     Route: 041
     Dates: start: 20180630, end: 20180630

REACTIONS (6)
  - Nausea [Recovering/Resolving]
  - Hepatic function abnormal [Recovering/Resolving]
  - Back pain [Recovering/Resolving]
  - White blood cell count decreased [Recovering/Resolving]
  - Vomiting [Recovering/Resolving]
  - Dizziness [Recovering/Resolving]

NARRATIVE: CASE EVENT DATE: 20180630
